FAERS Safety Report 6034431-3 (Version None)
Quarter: 2009Q1

REPORT INFORMATION
  Report Type: 
  Country: None (occurrence: None)
  Receive Date: 20090112
  Receipt Date: 20090108
  Transmission Date: 20090719
  Serious: Yes (Other)
  Sender: FDA-Public Use
  Company Number: B0552104A

PATIENT
  Age: 10 Year
  Sex: Female

DRUGS (3)
  1. RELENZA [Suspect]
     Indication: INFLUENZA
     Dosage: 10MG PER DAY
     Route: 055
     Dates: start: 20081222, end: 20081222
  2. BRUFEN [Concomitant]
     Route: 048
  3. ZESULAN [Concomitant]
     Route: 048

REACTIONS (2)
  - HALLUCINATION [None]
  - SOMNAMBULISM [None]
